FAERS Safety Report 6263837-2 (Version None)
Quarter: 2009Q3

REPORT INFORMATION
  Report Type: 
  Country: None (occurrence: None)
  Receive Date: 20090710
  Receipt Date: 20090629
  Transmission Date: 20100115
  Serious: Yes (Hospitalization)
  Sender: FDA-Public Use
  Company Number: BR-KINGPHARMUSA00001-K200900772

PATIENT
  Age: 34 Year
  Sex: Male

DRUGS (3)
  1. BICILLIN L-A [Suspect]
     Indication: TUBERCULOSIS
     Dosage: UNK
  2. RIFAMPICIN [Concomitant]
     Indication: TUBERCULOSIS
     Dosage: UNK
  3. ISONIAZID [Concomitant]
     Indication: TUBERCULOSIS
     Dosage: UNK

REACTIONS (5)
  - ATRIOVENTRICULAR BLOCK [None]
  - HEART RATE IRREGULAR [None]
  - HEART SOUNDS ABNORMAL [None]
  - HYPERHIDROSIS [None]
  - SYNCOPE [None]
